FAERS Safety Report 17422790 (Version 2)
Quarter: 2021Q1

REPORT INFORMATION
  Report Type: Spontaneous
  Country: US (occurrence: US)
  Receive Date: 20200215
  Receipt Date: 20210212
  Transmission Date: 20210419
  Serious: Yes (Other)
  Sender: FDA-Public Use
  Company Number: US-ENDO PHARMACEUTICALS INC-2019-111215

PATIENT

DRUGS (1)
  1. PERPHENAZINE. [Suspect]
     Active Substance: PERPHENAZINE
     Indication: PRODUCT USED FOR UNKNOWN INDICATION
     Dosage: UNK UNKNOWN, UNKNOWN
     Route: 048

REACTIONS (1)
  - Psychotic disorder [Unknown]
